FAERS Safety Report 17679492 (Version 1)
Quarter: 2020Q2

REPORT INFORMATION
  Report Type: Spontaneous
  Country: US (occurrence: US)
  Receive Date: 20200416
  Receipt Date: 20200416
  Transmission Date: 20200714
  Serious: No
  Sender: FDA-Public Use
  Company Number: None

PATIENT
  Age: 55 Year
  Sex: Male

DRUGS (1)
  1. EPCLUSA [Suspect]
     Active Substance: SOFOSBUVIR\VELPATASVIR
     Dosage: OTHER
     Route: 048
     Dates: start: 2020

REACTIONS (2)
  - Headache [None]
  - Fatigue [None]

NARRATIVE: CASE EVENT DATE: 20200330
